FAERS Safety Report 5626674-5 (Version None)
Quarter: 2008Q1

REPORT INFORMATION
  Report Type: 
  Country: None (occurrence: None)
  Receive Date: 20080214
  Receipt Date: 20080213
  Transmission Date: 20080703
  Serious: Yes (Life-Threatening)
  Sender: FDA-Public Use
  Company Number: JP-BOEHRINGER INGELHEIM GMBH, GERMANY-2007-BP-24864NB

PATIENT
  Sex: Female
  Weight: 41 kg

DRUGS (6)
  1. BI-SIFROL TABLETS [Suspect]
     Indication: PARKINSON'S DISEASE
     Route: 048
     Dates: start: 20060720
  2. CARBIDOPA AND LEVODOPA [Concomitant]
     Route: 048
     Dates: start: 20040618
  3. CABERGOLINE [Concomitant]
     Route: 048
     Dates: start: 20070322, end: 20070405
  4. PAXIL [Concomitant]
     Route: 048
     Dates: start: 20060831, end: 20061214
  5. DOPS [Concomitant]
     Route: 048
     Dates: start: 20060831, end: 20060914
  6. SENNOSIDE [Concomitant]
     Route: 048
     Dates: start: 20070125

REACTIONS (2)
  - PATHOLOGICAL GAMBLING [None]
  - SELF INJURIOUS BEHAVIOUR [None]
